FAERS Safety Report 20706647 (Version 2)
Quarter: 2022Q2

REPORT INFORMATION
  Report Type: Spontaneous
  Country: US (occurrence: US)
  Receive Date: 20220413
  Receipt Date: 20220419
  Transmission Date: 20220720
  Serious: No
  Sender: FDA-Public Use
  Company Number: US-SA-SAC20220411001742

PATIENT
  Age: 6 Year
  Sex: Female

DRUGS (10)
  1. DUPIXENT [Suspect]
     Active Substance: DUPILUMAB
     Indication: Dermatitis atopic
     Dosage: 200 MG, QOW
     Route: 058
     Dates: start: 202103, end: 202110
  2. DUPIXENT [Suspect]
     Active Substance: DUPILUMAB
     Dosage: 200 MG, QOW
     Route: 058
     Dates: start: 202203
  3. CHILDREN CLARITIN ALLERGY [Concomitant]
     Active Substance: LORATADINE
  4. AQUAPHOR [Concomitant]
     Active Substance: PETROLATUM
  5. HYDROCORTISONE [Concomitant]
     Active Substance: HYDROCORTISONE
  6. TRIAMCINOLONE ACETONIDE [Concomitant]
     Active Substance: TRIAMCINOLONE ACETONIDE
  7. FLUOCINONIDE [Concomitant]
     Active Substance: FLUOCINONIDE
  8. HYDROXYZINE HYDROCHLORIDE [Concomitant]
     Active Substance: HYDROXYZINE HYDROCHLORIDE
  9. CHILDRENS MOTRIN [Concomitant]
     Active Substance: IBUPROFEN
  10. AQUAPHOR [WHITE SOFT PARAFFIN] [Concomitant]

REACTIONS (4)
  - Headache [Not Recovered/Not Resolved]
  - Sleep disorder [Recovered/Resolved]
  - Eczema [Recovered/Resolved]
  - Product use issue [Unknown]

NARRATIVE: CASE EVENT DATE: 20210301
